FAERS Safety Report 10076608 (Version 1)
Quarter: 2014Q2

REPORT INFORMATION
  Report Type: Spontaneous
  Country: US (occurrence: None)
  Receive Date: 20140411
  Receipt Date: 20140411
  Transmission Date: 20141212
  Serious: Yes (Hospitalization)
  Sender: FDA-Public Use
  Company Number: None

PATIENT
  Age: 62 Year
  Sex: Male
  Weight: 109.77 kg

DRUGS (1)
  1. INVOKANA [Suspect]
     Indication: TYPE 2 DIABETES MELLITUS
     Route: 048
     Dates: start: 20140314, end: 20140408

REACTIONS (6)
  - Dizziness [None]
  - Visual impairment [None]
  - Loss of consciousness [None]
  - Fall [None]
  - Renal failure acute [None]
  - Dehydration [None]
